FAERS Safety Report 14762694 (Version 3)
Quarter: 2018Q3

REPORT INFORMATION
  Report Type: Spontaneous
  Country: US (occurrence: US)
  Receive Date: 20180416
  Receipt Date: 20180810
  Transmission Date: 20181010
  Serious: No
  Sender: FDA-Public Use
  Company Number: US-PFIZER INC-2018147951

PATIENT
  Sex: Female

DRUGS (1)
  1. CLEOCIN [Suspect]
     Active Substance: CLINDAMYCIN PHOSPHATE
     Dosage: UNK

REACTIONS (3)
  - Drug hypersensitivity [Unknown]
  - Asthma [Unknown]
  - Dyspnoea [Unknown]
